FAERS Safety Report 13131842 (Version 5)
Quarter: 2017Q4

REPORT INFORMATION
  Report Type: Report from Study
  Country: US (occurrence: US)
  Receive Date: 20170119
  Receipt Date: 20171109
  Transmission Date: 20180320
  Serious: Yes (Hospitalization)
  Sender: FDA-Public Use
  Company Number: US-ACTELION-A-NJ2017-148439

PATIENT
  Age: 78 Year
  Sex: Female

DRUGS (4)
  1. METOPROLOL. [Concomitant]
     Active Substance: METOPROLOL
  2. DILTIAZEM. [Concomitant]
     Active Substance: DILTIAZEM
  3. TRACLEER [Suspect]
     Active Substance: BOSENTAN
     Indication: PULMONARY ARTERIAL HYPERTENSION
     Dosage: 125 MG, BID
     Route: 048
     Dates: start: 20160408
  4. ELIQUIS [Concomitant]
     Active Substance: APIXABAN

REACTIONS (17)
  - Dyspnoea [Recovering/Resolving]
  - Palpitations [Unknown]
  - Pulmonary arterial hypertension [Unknown]
  - Disease complication [Unknown]
  - Syncope [Unknown]
  - Myasthenia gravis crisis [Unknown]
  - Pneumonia [Unknown]
  - Aortic aneurysm [Unknown]
  - Joint swelling [Not Recovered/Not Resolved]
  - Asthenia [Not Recovered/Not Resolved]
  - Intracranial aneurysm [Unknown]
  - Dizziness [Unknown]
  - Chest pain [Unknown]
  - Weight decreased [Unknown]
  - Systemic lupus erythematosus [Unknown]
  - Pulmonary congestion [Unknown]
  - Asthma [Unknown]

NARRATIVE: CASE EVENT DATE: 2016
